FAERS Safety Report 5131675-X (Version None)
Quarter: 2006Q4

REPORT INFORMATION
  Report Type: 
  Country: None (occurrence: None)
  Receive Date: 20061020
  Receipt Date: 20060825
  Transmission Date: 20070319
  Serious: Yes (Life-Threatening, Other)
  Sender: FDA-Public Use
  Company Number: DE-ABBOTT-06P-062-0342125-00

PATIENT
  Sex: Female

DRUGS (3)
  1. ERGENYL CHRONO TABLETS [Suspect]
     Indication: EPILEPSY
     Route: 048
     Dates: start: 20060809, end: 20060812
  2. LAMOTRIGINE [Suspect]
     Indication: EPILEPSY
     Route: 048
     Dates: end: 20060801
  3. LAMOTRIGINE [Suspect]
     Route: 048
     Dates: start: 20060801

REACTIONS (11)
  - APATHY [None]
  - ASTHENIA [None]
  - COORDINATION ABNORMAL [None]
  - DELIRIUM [None]
  - DRUG LEVEL DECREASED [None]
  - ELECTROENCEPHALOGRAM ABNORMAL [None]
  - ENCEPHALOPATHY [None]
  - PANCYTOPENIA [None]
  - PSYCHOMOTOR HYPERACTIVITY [None]
  - SOMNOLENCE [None]
  - WHITE BLOOD CELL COUNT DECREASED [None]
